FAERS Safety Report 10293739 (Version 1)
Quarter: 2014Q3

REPORT INFORMATION
  Report Type: Spontaneous
  Country: FR (occurrence: FR)
  Receive Date: 20140710
  Receipt Date: 20140710
  Transmission Date: 20150326
  Serious: Yes (Hospitalization, Other)
  Sender: FDA-Public Use
  Company Number: FR-PFIZER INC-2014187894

PATIENT
  Age: 66 Year
  Sex: Male

DRUGS (17)
  1. ALDACTONE [Suspect]
     Active Substance: SPIRONOLACTONE
     Dosage: 75 MG, DAILY
     Dates: end: 20140524
  2. LASILIX [Suspect]
     Active Substance: FUROSEMIDE
     Dosage: 120 MG, DAILY
  3. LASILIX [Suspect]
     Active Substance: FUROSEMIDE
     Dosage: 40 MG, DAILY
  4. DUPHALAC [Concomitant]
     Active Substance: LACTULOSE
     Dosage: 2 DF, 3X/DAY
     Dates: start: 200605
  5. DUPHALAC [Concomitant]
     Active Substance: LACTULOSE
     Dosage: 2 DF, DAILY
  6. ALDACTONE [Suspect]
     Active Substance: SPIRONOLACTONE
     Indication: OEDEMA PERIPHERAL
     Dosage: 50 MG, DAILY
     Route: 048
     Dates: start: 20131126
  7. KEPPRA [Concomitant]
     Active Substance: LEVETIRACETAM
     Dosage: 1 G, 2X/DAY
  8. XATRAL - SLOW RELEASE [Concomitant]
     Active Substance: ALFUZOSIN
     Dosage: 10 MG, DAILY
  9. DUPHALAC [Concomitant]
     Active Substance: LACTULOSE
     Dosage: 2 DF, DAILY
  10. DUPHALAC [Concomitant]
     Active Substance: LACTULOSE
     Dosage: 3 DF, DAILY
  11. INSULIN [Concomitant]
     Active Substance: INSULIN NOS
     Dosage: UNK
     Dates: start: 200605
  12. DUPHALAC [Concomitant]
     Active Substance: LACTULOSE
     Dosage: 2 DF, 3X/DAY
  13. VITAMIN K [Concomitant]
     Active Substance: PHYTONADIONE
  14. LASILIX [Suspect]
     Active Substance: FUROSEMIDE
     Indication: OEDEMA PERIPHERAL
     Dosage: 40 MG, DAILY
  15. KEPPRA [Concomitant]
     Active Substance: LEVETIRACETAM
     Dosage: 500 MG, 2X/DAY
     Dates: start: 2014
  16. AMLOR [Concomitant]
     Active Substance: AMLODIPINE BESYLATE
     Indication: HYPERTENSION
     Dosage: 10 MG, DAILY
     Dates: start: 2013
  17. INVANZ [Concomitant]
     Active Substance: ERTAPENEM SODIUM
     Indication: PROSTATITIS
     Dosage: 1 G, DAILY
     Dates: start: 2014

REACTIONS (7)
  - Condition aggravated [Recovered/Resolved]
  - Hypoglycaemia [Unknown]
  - Bradycardia [Recovered/Resolved]
  - Cardio-respiratory arrest [Recovered/Resolved]
  - Renal failure acute [Recovered/Resolved]
  - Hyperkalaemia [Recovered/Resolved]
  - Sinus arrhythmia [Recovered/Resolved]

NARRATIVE: CASE EVENT DATE: 20140424
